FAERS Safety Report 12004580 (Version 1)
Quarter: 2016Q1

REPORT INFORMATION
  Report Type: Report from Study
  Country: US (occurrence: US)
  Receive Date: 20160204
  Receipt Date: 20160204
  Transmission Date: 20160526
  Serious: No
  Sender: FDA-Public Use
  Company Number: US-ABBVIE-15K-163-1434927-00

PATIENT
  Age: 41 Year
  Sex: Female

DRUGS (1)
  1. HUMIRA [Suspect]
     Active Substance: ADALIMUMAB
     Indication: RHEUMATOID ARTHRITIS
     Route: 065
     Dates: start: 20150511, end: 20150718

REACTIONS (7)
  - Pain [Unknown]
  - Injection site mass [Not Recovered/Not Resolved]
  - Inappropriate schedule of drug administration [Unknown]
  - Device issue [Unknown]
  - Pruritus [Unknown]
  - Injection site pain [Unknown]
  - Fatigue [Recovered/Resolved]

NARRATIVE: CASE EVENT DATE: 2015
